FAERS Safety Report 4907280-4 (Version None)
Quarter: 2006Q1

REPORT INFORMATION
  Report Type: 
  Country: None (occurrence: None)
  Receive Date: 20060207
  Receipt Date: 20060125
  Transmission Date: 20060701
  Serious: Yes (Death, Hospitalization, Other)
  Sender: FDA-Public Use
  Company Number: 2006004703

PATIENT
  Sex: Male
  Weight: 77.3 kg

DRUGS (6)
  1. LIPITOR [Suspect]
     Indication: ILL-DEFINED DISORDER
     Dosage: 10 MG (10 MG, 1 IN 1 D), UNKNOWN
     Route: 065
     Dates: end: 20051119
  2. ZOCOR [Suspect]
     Indication: ILL-DEFINED DISORDER
     Dosage: UNK (20 MG), UNKNOWN
     Route: 065
     Dates: start: 20051119, end: 20051222
  3. ANTIBIOTICS (ANTIBIOTICS) [Concomitant]
  4. LACTULOSE [Concomitant]
  5. HYDRALAZINE HCL [Concomitant]
  6. FLAGYL [Concomitant]

REACTIONS (6)
  - DIALYSIS [None]
  - GENERAL PHYSICAL HEALTH DETERIORATION [None]
  - LABORATORY TEST ABNORMAL [None]
  - LIVER FUNCTION TEST ABNORMAL [None]
  - RENAL FAILURE [None]
  - TRANSAMINASES INCREASED [None]
